FAERS Safety Report 10902199 (Version 2)
Quarter: 2015Q1

REPORT INFORMATION
  Report Type: Spontaneous
  Country: CH (occurrence: CH)
  Receive Date: 20150310
  Receipt Date: 20150324
  Transmission Date: 20150721
  Serious: Yes (Disabling, Other)
  Sender: FDA-Public Use
  Company Number: PHHY2015CH026904

PATIENT
  Sex: Male

DRUGS (6)
  1. VENTOLIN [Concomitant]
     Active Substance: ALBUTEROL SULFATE
     Indication: ASTHMA
     Dosage: UNK UNK, PRN
     Route: 065
  2. DIAMOX SEQUELS [Concomitant]
     Active Substance: ACETAZOLAMIDE
     Indication: PRODUCT USED FOR UNKNOWN INDICATION
     Dosage: 1 DF, UNK
     Route: 065
  3. RASILEZ [Suspect]
     Active Substance: ALISKIREN
     Indication: HYPERTENSION
     Dosage: 1 DF, QD
     Route: 065
  4. NORVASC [Concomitant]
     Active Substance: AMLODIPINE BESYLATE
     Indication: HYPERTENSION
     Dosage: MORNINGS AND EVENINGS 5 MG EACH  HALF TABLET
     Route: 065
  5. ASPIRIN CARDIO [Concomitant]
     Active Substance: ASPIRIN
     Indication: PRODUCT USED FOR UNKNOWN INDICATION
     Dosage: 1 DF, QD (IN THE MORNING)
     Route: 065
  6. LODOZ [Concomitant]
     Active Substance: BISOPROLOL FUMARATE\HYDROCHLOROTHIAZIDE
     Indication: HYPERTENSION
     Dosage: 1 DF, QD
     Route: 065

REACTIONS (15)
  - Uveitis [Unknown]
  - Age-related macular degeneration [Not Recovered/Not Resolved]
  - Retinal haemorrhage [Unknown]
  - Vitreous detachment [Unknown]
  - Retinal vein occlusion [Unknown]
  - Rib fracture [Unknown]
  - Angina pectoris [Unknown]
  - Venous stenosis [Unknown]
  - Dizziness [Unknown]
  - Vitreous floaters [Unknown]
  - Vasodilatation [Unknown]
  - Visual acuity reduced [Unknown]
  - Dyspnoea [Unknown]
  - Aortic arteriosclerosis [Unknown]
  - Macular oedema [Unknown]

NARRATIVE: CASE EVENT DATE: 201412
